FAERS Safety Report 6871398-X (Version None)
Quarter: 2010Q3

REPORT INFORMATION
  Report Type: 
  Country: None (occurrence: None)
  Receive Date: 20100723
  Receipt Date: 20100722
  Transmission Date: 20110219
  Serious: Yes (Life-Threatening)
  Sender: FDA-Public Use
  Company Number: FR-ASTRAZENECA-2010SE26885

PATIENT
  Age: 55 Year
  Sex: Female

DRUGS (11)
  1. DIPRIVAN [Suspect]
     Indication: ANAESTHESIA
     Route: 042
     Dates: start: 20100510
  2. SUFENTA PRESERVATIVE FREE [Suspect]
     Indication: ANAESTHESIA
     Route: 042
     Dates: start: 20100510
  3. SUFENTA PRESERVATIVE FREE [Suspect]
     Route: 042
     Dates: start: 20100510
  4. TRACRIUM [Suspect]
     Indication: ANAESTHESIA
     Route: 042
     Dates: start: 20100510
  5. KETALAR [Concomitant]
     Indication: ANAESTHESIA
     Route: 042
     Dates: start: 20100510
  6. HYPNOVEL [Concomitant]
     Indication: ANAESTHESIA
     Route: 042
     Dates: start: 20100510
  7. MONO-ALGIC [Concomitant]
     Route: 048
  8. PARACETAMOL [Concomitant]
     Route: 048
  9. KETOPROFEN [Concomitant]
     Route: 048
  10. AMITRIPTYLINE HCL [Concomitant]
     Route: 048
  11. CHONDROSULF [Concomitant]
     Route: 048

REACTIONS (1)
  - ANAPHYLACTIC SHOCK [None]
